FAERS Safety Report 6822809-7 (Version None)
Quarter: 2010Q3

REPORT INFORMATION
  Report Type: 
  Country: None (occurrence: None)
  Receive Date: 20100702
  Receipt Date: 20100625
  Transmission Date: 20110219
  Serious: Yes (Hospitalization)
  Sender: FDA-Public Use
  Company Number: 2010GW000498

PATIENT
  Sex: Male

DRUGS (7)
  1. MAXAIR [Suspect]
     Indication: ASTHMA
     Dosage: 400 UG; QD; INH
     Route: 055
  2. MAXAIR [Suspect]
     Indication: CHRONIC OBSTRUCTIVE PULMONARY DISEASE
     Dosage: 400 UG; QD; INH
     Route: 055
  3. INTAL [Concomitant]
  4. PULMICORT [Concomitant]
  5. ADVAIR [Concomitant]
  6. ALBUTEROL /00139501/ [Concomitant]
  7. SPIRIVA [Concomitant]

REACTIONS (2)
  - ASTHMA [None]
  - FALL [None]
